FAERS Safety Report 6956994-3 (Version None)
Quarter: 2010Q3

REPORT INFORMATION
  Report Type: 
  Country: None (occurrence: None)
  Receive Date: 20100827
  Receipt Date: 20100827
  Transmission Date: 20110219
  Serious: No
  Sender: FDA-Public Use
  Company Number: None

PATIENT
  Age: 23 Year
  Sex: Female
  Weight: 63.5036 kg

DRUGS (4)
  1. LOVENOX [Suspect]
     Indication: FEELING HOT
     Dosage: PREFILLED SYRINGE
     Dates: start: 20071128, end: 20080401
  2. LOVENOX [Suspect]
     Indication: PAIN
     Dosage: PREFILLED SYRINGE
     Dates: start: 20071128, end: 20080401
  3. LOVENOX [Suspect]
     Indication: PIGMENTATION DISORDER
     Dosage: PREFILLED SYRINGE
     Dates: start: 20071128, end: 20080401
  4. LOVENOX [Suspect]
     Indication: SWELLING
     Dosage: PREFILLED SYRINGE
     Dates: start: 20071128, end: 20080401

REACTIONS (4)
  - INJECTION SITE PAIN [None]
  - INJECTION SITE PALLOR [None]
  - INJECTION SITE REACTION [None]
  - INJECTION SITE WARMTH [None]
